FAERS Safety Report 8886694 (Version 1)
Quarter: 2012Q4

REPORT INFORMATION
  Report Type: 
  Country: US (occurrence: US)
  Receive Date: 20121105
  Receipt Date: 20121105
  Transmission Date: 20130627
  Serious: No
  Sender: FDA-Public Use
  Company Number: US-B.I. PHARMACEUTICALS,INC./RIDGEFIELD-2012-BP-27098BP

PATIENT
  Age: 64 Year
  Sex: Male
  Weight: 84 kg

DRUGS (10)
  1. SPIRIVA [Suspect]
     Indication: CHRONIC OBSTRUCTIVE PULMONARY DISEASE
     Dosage: 18 mcg
     Route: 055
     Dates: start: 20121001, end: 20121015
  2. CLONIDINE [Concomitant]
     Indication: HYPERTENSION
     Dosage: 0.1 mg
     Dates: start: 2012
  3. NASONEX [Concomitant]
     Indication: RHINORRHOEA
     Dosage: 100 mcg
     Route: 045
     Dates: start: 2012
  4. OXYCODONE [Concomitant]
     Indication: ARTHRALGIA
     Dosage: 60 mg
     Route: 048
     Dates: start: 2008
  5. OXYCODONE [Concomitant]
     Indication: BACK PAIN
     Dosage: 10 mg
     Route: 048
     Dates: start: 2008
  6. AMBIEN [Concomitant]
     Indication: SLEEP DISORDER
     Dosage: 10 mg
     Route: 048
     Dates: start: 2007
  7. VISTARIL [Concomitant]
     Indication: SLEEP DISORDER
     Dosage: 50 mg
     Route: 048
     Dates: start: 2012
  8. BIOTENE MOUTH SPRAY [Concomitant]
     Indication: DRY MOUTH
     Dates: start: 2010
  9. CEPACOL [Concomitant]
     Indication: OROPHARYNGEAL PAIN
     Dates: start: 2010
  10. XANAX [Concomitant]
     Indication: ANXIETY
     Dosage: 2 mg
     Route: 048
     Dates: start: 2012

REACTIONS (1)
  - Dyspnoea [Recovered/Resolved]
